FAERS Safety Report 8675474 (Version 2)
Quarter: 2012Q4

REPORT INFORMATION
  Report Type: Report from Study
  Country: TW (occurrence: TW)
  Receive Date: 20120720
  Receipt Date: 20120917
  Transmission Date: 20130627
  Serious: Yes (Hospitalization)
  Sender: FDA-Public Use
  Company Number: TW-ROCHE-1085458

PATIENT
  Age: 57 Year
  Sex: Female
  Weight: 78 kg

DRUGS (7)
  1. HERCEPTIN [Suspect]
     Indication: BREAST CANCER
     Dosage: loading dose, 624 mg, , last dose 21 May 2012
     Route: 042
     Dates: start: 20120409
  2. HERCEPTIN [Suspect]
     Dosage: maintainance dose, 468mg
     Route: 042
     Dates: end: 20120702
  3. DOCETAXEL [Suspect]
     Indication: BREAST CANCER
     Dosage: date of last dose prior to sae: 21/May/2012
     Route: 042
     Dates: start: 20120409
  4. DOCETAXEL [Suspect]
     Dosage: Last dose before SAE on: 21/May/2012
     Route: 042
     Dates: start: 20120430, end: 20120611
  5. ZOLPIDEM [Concomitant]
     Route: 065
     Dates: start: 20120227
  6. SENOKOT [Concomitant]
     Route: 065
     Dates: start: 20120227
  7. PERTUZUMAB [Suspect]
     Indication: BREAST CANCER
     Route: 042
     Dates: start: 20120409, end: 20120702

REACTIONS (1)
  - Generalised oedema [Recovered/Resolved]
